FAERS Safety Report 4908359-3 (Version None)
Quarter: 2006Q1

REPORT INFORMATION
  Report Type: 
  Country: None (occurrence: None)
  Receive Date: 20060210
  Receipt Date: 20060131
  Transmission Date: 20060701
  Serious: Yes (Hospitalization, Other)
  Sender: FDA-Public Use
  Company Number: FR-ABBOTT-06P-056-0324203-00

PATIENT
  Age: 85 Year

DRUGS (5)
  1. CLARITHROMYCIN [Suspect]
     Indication: BRONCHITIS
     Route: 048
  2. CARBAMAZEPINE [Interacting]
     Indication: BIPOLAR I DISORDER
     Route: 048
  3. ANTI-VITAMIN K [Interacting]
     Indication: CARDIAC DISORDER
     Route: 048
  4. ANTI-VITAMIN K [Interacting]
     Indication: HYPERTENSIVE CARDIOMYOPATHY
  5. ANTI-VITAMIN K [Interacting]
     Indication: ISCHAEMIC CARDIOMYOPATHY

REACTIONS (11)
  - ASTERIXIS [None]
  - BRONCHITIS [None]
  - CHOLESTASIS [None]
  - CONFUSIONAL STATE [None]
  - CYTOLYTIC HEPATITIS [None]
  - DRUG INTERACTION [None]
  - ENCEPHALOPATHY [None]
  - HEPATOTOXICITY [None]
  - INTERNATIONAL NORMALISED RATIO INCREASED [None]
  - NEUROTOXICITY [None]
  - OVERDOSE [None]
